FAERS Safety Report 9138328 (Version 5)
Quarter: 2013Q4

REPORT INFORMATION
  Report Type: Report from Study
  Country: CA (occurrence: CA)
  Receive Date: 20130305
  Receipt Date: 20131125
  Transmission Date: 20140711
  Serious: Yes (Death, Other)
  Sender: FDA-Public Use
  Company Number: CA-BIOGENIDEC-2013BI019258

PATIENT
  Age: 55 Year
  Sex: Female
  Weight: 75 kg

DRUGS (9)
  1. TYSABRI [Suspect]
     Indication: MULTIPLE SCLEROSIS
     Route: 042
     Dates: start: 20080925
  2. NEURONTIN [Concomitant]
     Indication: MULTIPLE SCLEROSIS
     Route: 048
     Dates: start: 20121211
  3. DIOVAN [Concomitant]
     Indication: HYPERTENSION
     Route: 048
     Dates: start: 20121130
  4. CRESTOR [Concomitant]
     Indication: HYPERCHOLESTEROLAEMIA
     Route: 048
     Dates: start: 20110521
  5. SYNTHROID [Concomitant]
     Indication: HYPOTHYROIDISM
     Dates: start: 2000
  6. PANTOLOC [Concomitant]
     Indication: DYSPEPSIA
     Route: 048
     Dates: start: 2007
  7. ZOLOFT [Concomitant]
     Indication: DEPRESSION
     Route: 048
     Dates: start: 20090112
  8. SINGULAIR [Concomitant]
     Indication: SEASONAL ALLERGY
     Route: 048
     Dates: start: 2005
  9. REACTINE [Concomitant]
     Indication: SEASONAL ALLERGY
     Route: 048
     Dates: start: 201104

REACTIONS (1)
  - Metastatic malignant melanoma [Fatal]
